FAERS Safety Report 10248652 (Version 1)
Quarter: 2014Q2

REPORT INFORMATION
  Report Type: Spontaneous
  Country: ZA (occurrence: None)
  Receive Date: 20140618
  Receipt Date: 20140618
  Transmission Date: 20141212
  Serious: Yes (Death, Other)
  Sender: FDA-Public Use
  Company Number: 2387392

PATIENT
  Sex: Female

DRUGS (1)
  1. DEXMEDETOMIDINE HYDROCHLORIDE [Suspect]
     Indication: SEDATION
     Dates: end: 20130902

REACTIONS (4)
  - Pneumonia [None]
  - Off label use [None]
  - Hypotension [None]
  - General physical health deterioration [None]
